FAERS Safety Report 15864541 (Version 4)
Quarter: 2019Q2

REPORT INFORMATION
  Report Type: Report from Study
  Country: MX (occurrence: MX)
  Receive Date: 20190124
  Receipt Date: 20190524
  Transmission Date: 20190711
  Serious: Yes (Life-Threatening, Hospitalization)
  Sender: FDA-Public Use
  Company Number: PHHO2019MX000965

PATIENT
  Age: 22 Year
  Sex: Male
  Weight: 82.9 kg

DRUGS (7)
  1. INDOMETHACIN. [Suspect]
     Active Substance: INDOMETHACIN
     Indication: AXIAL SPONDYLOARTHRITIS
     Dosage: 50 MG, TID
     Route: 048
     Dates: start: 20180321, end: 20190108
  2. AMCAL PARACETAMOL [Concomitant]
     Indication: AXIAL SPONDYLOARTHRITIS
     Dosage: 750 MG, TID
     Route: 048
     Dates: start: 201801
  3. PREDNISONE. [Concomitant]
     Active Substance: PREDNISONE
     Indication: AXIAL SPONDYLOARTHRITIS
     Dosage: 10 MG, QD
     Route: 048
     Dates: start: 20180321, end: 20190108
  4. OMEPRAZOLE. [Concomitant]
     Active Substance: OMEPRAZOLE
     Dosage: UNK UNK, QD
     Route: 048
     Dates: start: 20190109
  5. AIN457 [Suspect]
     Active Substance: SECUKINUMAB
     Indication: AXIAL SPONDYLOARTHRITIS
     Dosage: 150 MG, UNK
     Route: 058
     Dates: start: 20180503, end: 20181213
  6. PREDNISONE. [Concomitant]
     Active Substance: PREDNISONE
     Dosage: 10 MG, QD
     Route: 048
     Dates: start: 20180321
  7. OMEPRAZOLE. [Concomitant]
     Active Substance: OMEPRAZOLE
     Indication: PROPHYLAXIS
     Dosage: 20 MG, QD
     Route: 048
     Dates: start: 201801, end: 20190108

REACTIONS (1)
  - Crohn^s disease [Recovered/Resolved]

NARRATIVE: CASE EVENT DATE: 20190108
